FAERS Safety Report 15801100 (Version 1)
Quarter: 2019Q1

REPORT INFORMATION
  Report Type: Report from Study
  Country: DE (occurrence: DE)
  Receive Date: 20190109
  Receipt Date: 20190109
  Transmission Date: 20190417
  Serious: Yes (Other)
  Sender: FDA-Public Use
  Company Number: DE-ROCHE-2239762

PATIENT
  Age: 39 Year
  Sex: Female

DRUGS (4)
  1. FENISTIL (GERMANY) [Concomitant]
     Active Substance: DIMETHINDENE MALEATE
     Route: 042
     Dates: start: 20180503
  2. OCRELIZUMAB. [Suspect]
     Active Substance: OCRELIZUMAB
     Indication: RELAPSING-REMITTING MULTIPLE SCLEROSIS
     Route: 042
     Dates: start: 20180503, end: 20181023
  3. PREDNISOLON [Concomitant]
     Active Substance: PREDNISOLONE
     Indication: MULTIPLE SCLEROSIS RELAPSE
     Route: 042
     Dates: start: 20180612, end: 20180616
  4. PREDNISOLUT [Concomitant]
     Active Substance: PREDNISOLONE
     Route: 042
     Dates: start: 20180503

REACTIONS (1)
  - Vascular graft thrombosis [Recovered/Resolved]

NARRATIVE: CASE EVENT DATE: 20180728
